FAERS Safety Report 6945145-7 (Version None)
Quarter: 2010Q3

REPORT INFORMATION
  Report Type: 
  Country: None (occurrence: None)
  Receive Date: 20100827
  Receipt Date: 20100817
  Transmission Date: 20110219
  Serious: Yes (Hospitalization, Other)
  Sender: FDA-Public Use
  Company Number: US-PFIZER INC-2010104263

PATIENT
  Sex: Male
  Weight: 70.748 kg

DRUGS (9)
  1. CHANTIX [Suspect]
     Indication: SMOKING CESSATION THERAPY
     Dosage: 0.5 MG, 1X/DAY
     Route: 048
     Dates: start: 20090903
  2. CHANTIX [Suspect]
     Dosage: 1 MG, 2X/DAY
     Route: 048
     Dates: end: 20091114
  3. LIPITOR [Concomitant]
     Dosage: UNK
  4. CELEXA [Concomitant]
     Indication: EMOTIONAL DISORDER
     Dosage: 20 MG, UNK
  5. CELEXA [Concomitant]
     Indication: MEMORY IMPAIRMENT
  6. CELEXA [Concomitant]
     Indication: DEPRESSION
  7. PLAVIX [Concomitant]
     Indication: BLOOD CHOLESTEROL INCREASED
     Dosage: UNK
  8. NEXIUM [Concomitant]
     Dosage: UNK
  9. FISH OIL [Concomitant]

REACTIONS (9)
  - CONFUSIONAL STATE [None]
  - FEAR [None]
  - FEELING OF DESPAIR [None]
  - FRUSTRATION [None]
  - INJURY [None]
  - MEMORY IMPAIRMENT [None]
  - PSYCHOTIC DISORDER [None]
  - ROAD TRAFFIC ACCIDENT [None]
  - SUICIDAL IDEATION [None]
